FAERS Safety Report 24308436 (Version 1)
Quarter: 2024Q3

REPORT INFORMATION
  Report Type: Spontaneous
  Country: DK (occurrence: DK)
  Receive Date: 20240911
  Receipt Date: 20240911
  Transmission Date: 20241016
  Serious: Yes (Death, Other)
  Sender: PFIZER
  Company Number: None

PATIENT
  Age: 55 Year
  Sex: Female

DRUGS (2)
  1. CLINDAMYCIN HYDROCHLORIDE [Suspect]
     Active Substance: CLINDAMYCIN HYDROCHLORIDE
     Indication: Infection prophylaxis
     Dosage: 300 MG, 3X/DAY
     Route: 048
     Dates: start: 20240619, end: 20240628
  2. IBUPROFEN [Concomitant]
     Active Substance: IBUPROFEN
     Indication: Procedural pain
     Dosage: 400 MG, 4X/DAY; FREQ: 25 D
     Dates: start: 20240619, end: 20240628

REACTIONS (2)
  - Cardiac arrest [Fatal]
  - Off label use [Unknown]

NARRATIVE: CASE EVENT DATE: 20240619
